FAERS Safety Report 24018231 (Version 1)
Quarter: 2024Q2

REPORT INFORMATION
  Report Type: Spontaneous
  Country: US (occurrence: US)
  Receive Date: 20240627
  Receipt Date: 20240627
  Transmission Date: 20240715
  Serious: Yes (Other)
  Sender: FDA-Public Use
  Company Number: US-ABBVIE-5816166

PATIENT
  Age: 61 Year
  Sex: Female

DRUGS (4)
  1. URSODIOL [Suspect]
     Active Substance: URSODIOL
     Indication: Hepatic cirrhosis
     Dosage: FORM STRENGTH: 250 MILLIGRAM
     Route: 048
     Dates: start: 202310, end: 202310
  2. URSO 250 [Suspect]
     Active Substance: URSODIOL
     Indication: Hepatic cirrhosis
     Dosage: FORM STRENGTH: 250 MILLIGRAM
     Route: 048
     Dates: start: 2002, end: 202310
  3. URSO 250 [Suspect]
     Active Substance: URSODIOL
     Indication: Hepatic cirrhosis
     Dosage: FORM STRENGTH: 250 MILLIGRAM
     Route: 048
     Dates: start: 202310
  4. SYNTHROID [Concomitant]
     Active Substance: LEVOTHYROXINE SODIUM
     Indication: Thyroid disorder

REACTIONS (3)
  - Breast cancer [Unknown]
  - Illness [Recovered/Resolved]
  - Upper respiratory tract infection [Recovered/Resolved]

NARRATIVE: CASE EVENT DATE: 20140611
